FAERS Safety Report 6616740-X (Version None)
Quarter: 2010Q1

REPORT INFORMATION
  Report Type: 
  Country: None (occurrence: None)
  Receive Date: 20100305
  Receipt Date: 20100224
  Transmission Date: 20100710
  Serious: Yes (Other)
  Sender: FDA-Public Use
  Company Number: US-ABBOTT-10P-163-0628479-00

PATIENT
  Sex: Female
  Weight: 2.724 kg

DRUGS (2)
  1. SYNTHROID [Suspect]
     Indication: DRUG EXPOSURE DURING PREGNANCY
     Route: 064
  2. METOPROLOL TARTRATE [Suspect]
     Indication: DRUG EXPOSURE DURING PREGNANCY
     Route: 064

REACTIONS (2)
  - AMNIOTIC FLUID VOLUME INCREASED [None]
  - DRUG EXPOSURE DURING PREGNANCY [None]
